FAERS Safety Report 7831556-4 (Version None)
Quarter: 2011Q4

REPORT INFORMATION
  Report Type: 
  Country: None (occurrence: None)
  Receive Date: 20111021
  Receipt Date: 20111010
  Transmission Date: 20120403
  Serious: Yes (Other)
  Sender: FDA-Public Use
  Company Number: US-JNJFOC-20111004594

PATIENT
  Sex: Female
  Weight: 65.32 kg

DRUGS (4)
  1. REMICADE [Suspect]
     Route: 042
     Dates: start: 20110928, end: 20110928
  2. REMICADE [Suspect]
     Indication: RHEUMATOID ARTHRITIS
     Route: 042
     Dates: start: 20110831
  3. REMICADE [Suspect]
     Route: 042
     Dates: start: 20091201
  4. METHOTREXATE [Concomitant]
     Indication: RHEUMATOID ARTHRITIS
     Route: 048

REACTIONS (8)
  - BLOOD PRESSURE INCREASED [None]
  - HEART RATE INCREASED [None]
  - INFUSION RELATED REACTION [None]
  - PYREXIA [None]
  - OCULAR HYPERAEMIA [None]
  - DYSKINESIA [None]
  - FLUSHING [None]
  - CHILLS [None]
